FAERS Safety Report 12668278 (Version 1)
Quarter: 2016Q3

REPORT INFORMATION
  Report Type: Spontaneous
  Country: IL (occurrence: IL)
  Receive Date: 20160819
  Receipt Date: 20160819
  Transmission Date: 20161109
  Serious: Yes (Death, Hospitalization, Other)
  Sender: FDA-Public Use
  Company Number: IL-APOPHARMA USA, INC.-2016AP010461

PATIENT
  Age: 81 Year
  Sex: Male

DRUGS (2)
  1. PREDNISONE. [Suspect]
     Active Substance: PREDNISONE
     Indication: PLASMA CELL MYELOMA
     Dosage: UNK UNK, Q.M.T.
     Route: 065
     Dates: start: 1980, end: 1985
  2. ALKERAN [Suspect]
     Active Substance: MELPHALAN
     Indication: PLASMA CELL MYELOMA
     Dosage: UNK, Q.M.T.
     Route: 065
     Dates: start: 1980, end: 1986

REACTIONS (4)
  - Interstitial lung disease [Unknown]
  - Myelodysplastic syndrome [Not Recovered/Not Resolved]
  - Lymphoma [Not Recovered/Not Resolved]
  - Respiratory failure [Fatal]

NARRATIVE: CASE EVENT DATE: 1986
